FAERS Safety Report 14660619 (Version 1)
Quarter: 2018Q1

REPORT INFORMATION
  Report Type: Spontaneous
  Country: KR (occurrence: KR)
  Receive Date: 20180320
  Receipt Date: 20180320
  Transmission Date: 20180509
  Serious: Yes (Other)
  Sender: FDA-Public Use
  Company Number: KR-PFIZER INC-2018112615

PATIENT
  Sex: Male

DRUGS (1)
  1. LYRICA [Suspect]
     Active Substance: PREGABALIN
     Dosage: UNK
     Route: 048
     Dates: end: 201802

REACTIONS (4)
  - Swelling face [Recovered/Resolved]
  - Headache [Not Recovered/Not Resolved]
  - Facial paralysis [Not Recovered/Not Resolved]
  - Nausea [Not Recovered/Not Resolved]
